FAERS Safety Report 21607711 (Version 2)
Quarter: 2022Q4

REPORT INFORMATION
  Report Type: Report from Study
  Country: PR (occurrence: PR)
  Receive Date: 20221117
  Receipt Date: 20221124
  Transmission Date: 20230113
  Serious: No
  Sender: FDA-Public Use
  Company Number: PR-ABBVIE-4203688

PATIENT
  Sex: Male
  Weight: 65.31 kg

DRUGS (1)
  1. VENCLEXTA [Suspect]
     Active Substance: VENETOCLAX
     Indication: Acute myeloid leukaemia
     Route: 048
     Dates: start: 20220110, end: 20221031

REACTIONS (2)
  - Blood bilirubin increased [Unknown]
  - Blood bilirubin decreased [Unknown]

NARRATIVE: CASE EVENT DATE: 20221031
